FAERS Safety Report 4373122-1 (Version None)
Quarter: 2004Q2

REPORT INFORMATION
  Report Type: 
  Country: None (occurrence: None)
  Receive Date: 20040603
  Receipt Date: 20040203
  Transmission Date: 20050107
  Serious: Yes (Other)
  Sender: FDA-Public Use
  Company Number: US_0405103232

PATIENT
  Age: 50 Year
  Sex: Male
  Weight: 83 kg

DRUGS (13)
  1. VANCOMYCIN [Suspect]
     Indication: ESCHERICHIA INFECTION
  2. HEPARIN SODIUM [Suspect]
  3. HUMULIN [Concomitant]
  4. ACETAMINOPHEN [Concomitant]
  5. CHLORPHENIRAMINE MALEATE [Concomitant]
  6. PSEUDOEPHEDRINE HCL [Concomitant]
  7. CARDIZEM CD [Concomitant]
  8. COZAAR [Concomitant]
  9. HYDROCHLOROTHIAZIDE [Concomitant]
  10. PRANDIN (PRANDIN) [Concomitant]
  11. FERROUS SULFATE TAB [Concomitant]
  12. LANTUS [Concomitant]
  13. ASPIRIN [Concomitant]

REACTIONS (18)
  - ANAEMIA [None]
  - BALANITIS CANDIDA [None]
  - CONDITION AGGRAVATED [None]
  - DEAFNESS UNILATERAL [None]
  - DISEASE RECURRENCE [None]
  - ESCHERICHIA INFECTION [None]
  - FOOT AMPUTATION [None]
  - GANGRENE [None]
  - HAEMORRHAGE [None]
  - IMPAIRED HEALING [None]
  - LEG AMPUTATION [None]
  - OSTEOMYELITIS [None]
  - PAIN [None]
  - PHIMOSIS [None]
  - SERRATIA INFECTION [None]
  - SKIN GRAFT FAILURE [None]
  - SKIN ULCER [None]
  - SWELLING [None]
